FAERS Safety Report 13100098 (Version 1)
Quarter: 2017Q1

REPORT INFORMATION
  Report Type: Spontaneous
  Country: US (occurrence: US)
  Receive Date: 20170110
  Receipt Date: 20170110
  Transmission Date: 20170428
  Serious: No
  Sender: FDA-Public Use
  Company Number: US-ASTRAZENECA-2017SE00592

PATIENT
  Sex: Male
  Weight: 68 kg

DRUGS (6)
  1. CEELXA [Concomitant]
     Route: 048
     Dates: start: 2012
  2. MOVANTIK [Suspect]
     Active Substance: NALOXEGOL OXALATE
     Indication: CONSTIPATION
     Route: 048
     Dates: start: 20161222
  3. XANAX [Concomitant]
     Active Substance: ALPRAZOLAM
     Indication: ANXIETY
     Route: 048
  4. BUPRENORPHINE. [Concomitant]
     Active Substance: BUPRENORPHINE
     Indication: PAIN
     Route: 048
     Dates: start: 2012
  5. MOVANTIK [Suspect]
     Active Substance: NALOXEGOL OXALATE
     Indication: CONSTIPATION
     Route: 048
     Dates: start: 20161123
  6. MILK OF MAGNESIA [Concomitant]
     Active Substance: MAGNESIUM HYDROXIDE

REACTIONS (7)
  - Haemorrhoids [Unknown]
  - Intentional product misuse [Unknown]
  - Abdominal distension [Unknown]
  - Expired product administered [Unknown]
  - Abnormal faeces [Unknown]
  - Malaise [Unknown]
  - Abdominal pain upper [Unknown]
